FAERS Safety Report 12697793 (Version 1)
Quarter: 2016Q3

REPORT INFORMATION
  Report Type: Not Available
  Country: None (occurrence: US)
  Receive Date: 20160830
  Receipt Date: 20160830
  Transmission Date: 20161109
  Serious: No
  Sender: FDA-Public Use
  Company Number: US-AKORN-24064

PATIENT
  Age: 57 Year
  Sex: Female
  Weight: 147 kg

DRUGS (1)
  1. LACTULOSE SOLUTION USP [Suspect]
     Active Substance: LACTULOSE

REACTIONS (1)
  - Diabetic neuropathy [None]
